FAERS Safety Report 7208376-7 (Version None)
Quarter: 2011Q1

REPORT INFORMATION
  Report Type: 
  Country: None (occurrence: None)
  Receive Date: 20110104
  Receipt Date: 20101222
  Transmission Date: 20110831
  Serious: Yes (Hospitalization, Other)
  Sender: FDA-Public Use
  Company Number: PHHY2010MX42036

PATIENT
  Sex: Female

DRUGS (2)
  1. ACLASTA [Suspect]
     Indication: OSTEOPOROSIS
     Dosage: 1 INJECTION (5 MG/100ML) PER YEAR
     Route: 042
     Dates: start: 20090201
  2. ACLASTA [Suspect]
     Dosage: 5MG/100ML
     Dates: start: 20100504

REACTIONS (5)
  - SURGERY [None]
  - SYNCOPE [None]
  - ARRHYTHMIA [None]
  - DISLOCATION OF VERTEBRA [None]
  - BONE PAIN [None]
